FAERS Safety Report 14182968 (Version 1)
Quarter: 2017Q4

REPORT INFORMATION
  Report Type: Spontaneous
  Country: CN (occurrence: CN)
  Receive Date: 20171113
  Receipt Date: 20171113
  Transmission Date: 20180321
  Serious: Yes (Hospitalization)
  Sender: FDA-Public Use
  Company Number: CN-GLAXOSMITHKLINE-CN2017GSK171216

PATIENT
  Age: 2 Year
  Sex: Male
  Weight: 14 kg

DRUGS (3)
  1. LORATADINE TABLETS [Suspect]
     Active Substance: LORATADINE
     Indication: IMPETIGO
     Dosage: 5 MG, QD
     Route: 048
     Dates: start: 20170819, end: 20170821
  2. POTASSIUM PERMANGANATE TABLETS [Suspect]
     Active Substance: POTASSIUM PERMANGANATE
     Indication: IMPETIGO
     Dosage: UNK UNK, QD(0.1G)
     Route: 061
     Dates: start: 20170819, end: 20170821
  3. BACTROBAN [Suspect]
     Active Substance: MUPIROCIN\MUPIROCIN CALCIUM
     Indication: IMPETIGO
     Dosage: 0.5 G, BID
     Route: 061
     Dates: start: 20170819, end: 20170823

REACTIONS (4)
  - Pruritus [Unknown]
  - Flushing [Unknown]
  - Rash maculo-papular [Unknown]
  - Eczema infected [Unknown]

NARRATIVE: CASE EVENT DATE: 20170824
